FAERS Safety Report 8450313-1 (Version None)
Quarter: 2012Q2

REPORT INFORMATION
  Report Type: 
  Country: None (occurrence: None)
  Receive Date: 20120613
  Receipt Date: 20120531
  Transmission Date: 20120825
  Serious: Yes (Death, Congenital Anomaly)
  Sender: FDA-Public Use
  Company Number: DSJ-2011-24611

PATIENT

DRUGS (1)
  1. OLMESARTAN MEDOXOMIL [Suspect]
     Indication: PRODUCT USED FOR UNKNOWN INDICATION
     Dosage: 10 MG, TRANSPLACENTAL
     Route: 064

REACTIONS (3)
  - FOETAL DEATH [None]
  - MATERNAL DRUGS AFFECTING FOETUS [None]
  - POTTER'S SYNDROME [None]
